FAERS Safety Report 12236781 (Version 2)
Quarter: 2016Q2

REPORT INFORMATION
  Report Type: Report from Study
  Country: US (occurrence: US)
  Receive Date: 20160405
  Receipt Date: 20160413
  Transmission Date: 20160815
  Serious: Yes (Other)
  Sender: FDA-Public Use
  Company Number: US-AMGEN-USASL2016038281

PATIENT
  Age: 50 Year
  Sex: Female

DRUGS (2)
  1. EMERGEN C [Concomitant]
     Active Substance: MINERALS\VITAMINS
     Dosage: UNK
  2. ENBREL [Suspect]
     Active Substance: ETANERCEPT
     Indication: RHEUMATOID ARTHRITIS
     Dosage: 50 MG, QWK
     Route: 065
     Dates: start: 2015

REACTIONS (5)
  - Arthralgia [Not Recovered/Not Resolved]
  - Insomnia [Unknown]
  - Lower respiratory tract infection [Unknown]
  - Nasal congestion [Unknown]
  - Peripheral swelling [Not Recovered/Not Resolved]
